FAERS Safety Report 13659614 (Version 2)
Quarter: 2017Q2

REPORT INFORMATION
  Report Type: Report from Study
  Country: KR (occurrence: KR)
  Receive Date: 20170616
  Receipt Date: 20170623
  Transmission Date: 20170830
  Serious: Yes (Hospitalization)
  Sender: FDA-Public Use
  Company Number: PHHO2017KR009051

PATIENT
  Age: 82 Year
  Sex: Female
  Weight: 42.4 kg

DRUGS (25)
  1. METFORMIN HYDROCHLORIDE. [Concomitant]
     Active Substance: METFORMIN HYDROCHLORIDE
     Indication: DIABETES MELLITUS
     Dosage: 0.5 G, QD
     Route: 048
     Dates: start: 20170605
  2. ONSERAN [Concomitant]
     Indication: PROPHYLAXIS OF NAUSEA AND VOMITING
     Dosage: 8 MG, PRN
     Route: 048
     Dates: start: 20170320
  3. TIROPA [Concomitant]
     Active Substance: TIROPRAMIDE
     Indication: ABDOMINAL PAIN
     Dosage: 100 MG, TID
     Route: 048
     Dates: start: 20170324
  4. ERDOS [Concomitant]
     Indication: COUGH
     Dosage: 300 MG, TID
     Route: 048
     Dates: start: 20170302
  5. MEGACE F [Concomitant]
     Indication: PROPHYLAXIS
     Dosage: 10 ML, QD
     Route: 048
     Dates: start: 20170316
  6. SMECTA [Concomitant]
     Active Substance: MONTMORILLONITE
     Indication: DIARRHOEA
     Dosage: 20 ML, PRN
     Route: 048
     Dates: start: 20170611
  7. MACPERAN [Concomitant]
     Active Substance: METOCLOPRAMIDE HYDROCHLORIDE
     Indication: VOMITING
     Dosage: 1 DF, PRN (1 TAB PRN)
     Route: 048
     Dates: start: 20170404
  8. URSA [Concomitant]
     Indication: ALANINE AMINOTRANSFERASE INCREASED
  9. GODEX [Concomitant]
     Indication: ALANINE AMINOTRANSFERASE INCREASED
  10. LOPERAMIDE [Concomitant]
     Active Substance: LOPERAMIDE
     Indication: DIARRHOEA
     Dosage: 2 MG, PRN
     Route: 048
     Dates: start: 20170324
  11. LDK378 [Suspect]
     Active Substance: CERITINIB
     Indication: SMALL CELL LUNG CANCER
     Dosage: 750 MG, QD
     Route: 048
     Dates: start: 20170320, end: 20170605
  12. LDK378 [Suspect]
     Active Substance: CERITINIB
     Dosage: 600 MG, QD
     Route: 048
     Dates: start: 20170621
  13. COFREL [Concomitant]
     Indication: COUGH
     Dosage: 20 MG, TID
     Route: 048
     Dates: start: 20170302
  14. URSA [Concomitant]
     Indication: ASPARTATE AMINOTRANSFERASE INCREASED
     Dosage: 100 MG, TID
     Route: 048
     Dates: start: 20170607, end: 20170620
  15. TENELIA [Concomitant]
     Active Substance: TENELIGLIPTIN
     Indication: DIABETES MELLITUS
     Dosage: 20 MG, QD
     Route: 048
     Dates: start: 20170201
  16. PLAVITOR [Concomitant]
     Indication: PROPHYLAXIS
     Dosage: 75 MG, QD
     Route: 048
     Dates: start: 20060409
  17. CURAN [Concomitant]
     Active Substance: RANITIDINE HYDROCHLORIDE
     Indication: PROPHYLAXIS
     Dosage: 150 MG, PRN
     Route: 048
     Dates: start: 20170321
  18. CADUET [Concomitant]
     Active Substance: AMLODIPINE BESYLATE\ATORVASTATIN CALCIUM
     Indication: HYPERTENSION
     Dosage: 5/10 QD
     Route: 048
     Dates: start: 20060409
  19. HUMULIN R [Concomitant]
     Active Substance: INSULIN HUMAN
     Indication: HYPERGLYCAEMIA
     Dosage: 100 U, QD
     Route: 042
     Dates: start: 20170606, end: 20170606
  20. LANTUS [Concomitant]
     Active Substance: INSULIN GLARGINE
     Indication: DIABETES MELLITUS
     Dosage: 14 U, QD
     Route: 058
     Dates: start: 20170607
  21. GODEX [Concomitant]
     Indication: ASPARTATE AMINOTRANSFERASE INCREASED
     Dosage: 1 DF, TID (1 CAP)
     Route: 048
     Dates: start: 20170607, end: 20170620
  22. NICETILE [Concomitant]
     Active Substance: ACETYLCARNITINE HYDROCHLORIDE
     Indication: PROPHYLAXIS
     Dosage: 500 MG, QD
     Route: 048
     Dates: start: 20170204
  23. HUMALOG [Concomitant]
     Active Substance: INSULIN LISPRO
     Indication: HYPERGLYCAEMIA
     Dosage: 4 U, PRN
     Route: 058
     Dates: start: 20170606, end: 20170610
  24. LASIX [Concomitant]
     Active Substance: FUROSEMIDE
     Indication: PROPHYLAXIS
     Dosage: 20 MG, PRN
     Route: 048
     Dates: start: 20170607, end: 20170609
  25. MUCOSTEN [Concomitant]
     Indication: COUGH
     Dosage: 300 MG, BID
     Route: 042
     Dates: start: 20170612, end: 20170613

REACTIONS (1)
  - Decreased appetite [Recovering/Resolving]

NARRATIVE: CASE EVENT DATE: 20170509
